FAERS Safety Report 7398456-8 (Version None)
Quarter: 2011Q2

REPORT INFORMATION
  Report Type: 
  Country: None (occurrence: None)
  Receive Date: 20110407
  Receipt Date: 20110331
  Transmission Date: 20111010
  Serious: Yes (Hospitalization, Other)
  Sender: FDA-Public Use
  Company Number: US-BIOGENIDEC-148201

PATIENT
  Sex: Male

DRUGS (4)
  1. AVONEX [Suspect]
     Route: 030
     Dates: start: 20010301, end: 20030101
  2. AVONEX [Suspect]
     Route: 030
     Dates: start: 20101124
  3. AVONEX [Suspect]
     Route: 030
     Dates: start: 20030101, end: 20090701
  4. AVONEX [Suspect]
     Indication: MULTIPLE SCLEROSIS
     Route: 030
     Dates: start: 19981101

REACTIONS (6)
  - ISCHAEMIC CARDIOMYOPATHY [None]
  - ANGINA PECTORIS [None]
  - CARDIAC FAILURE CONGESTIVE [None]
  - LIVER DISORDER [None]
  - CORONARY ARTERY OCCLUSION [None]
  - IMPLANTABLE DEFIBRILLATOR INSERTION [None]
